FAERS Safety Report 10111215 (Version 1)
Quarter: 2014Q2

REPORT INFORMATION
  Report Type: Spontaneous
  Country: US (occurrence: None)
  Receive Date: 20140421
  Receipt Date: 20140421
  Transmission Date: 20141212
  Serious: No
  Sender: FDA-Public Use
  Company Number: AEGR000278

PATIENT
  Age: 69 Year
  Sex: Female
  Weight: 71.2 kg

DRUGS (2)
  1. JUXTAPID (LOMITAPIDE) CAPSULE, 5MG [Suspect]
     Indication: TYPE IIA HYPERLIPIDAEMIA
     Route: 048
     Dates: start: 201312
  2. ATORVASTATIN (ATORVASTATIN) [Concomitant]

REACTIONS (1)
  - Diarrhoea [None]
